FAERS Safety Report 24017003 (Version 2)
Quarter: 2024Q3

REPORT INFORMATION
  Report Type: Spontaneous
  Country: US (occurrence: US)
  Receive Date: 20240626
  Receipt Date: 20240702
  Transmission Date: 20241016
  Serious: No
  Sender: AMGEN
  Company Number: US-AMGEN-USASP2024123440

PATIENT
  Age: 83 Year
  Sex: Male

DRUGS (2)
  1. RIABNI [Suspect]
     Active Substance: RITUXIMAB-ARRX
     Indication: Non-Hodgkin^s lymphoma
     Dosage: UNK (DOSE ORDERED: 700MG, DOSE REQUESTED: 1-500MG, 2-100MG VIALS)
     Route: 065
  2. RIABNI [Suspect]
     Active Substance: RITUXIMAB-ARRX
     Dosage: UNK (DOSE ORDERED: 700MG, DOSE REQUESTED: 1-500MG, 2-100MG VIALS)
     Route: 065

REACTIONS (1)
  - Accidental exposure to product [Unknown]

NARRATIVE: CASE EVENT DATE: 20240618
